FAERS Safety Report 7100099-8 (Version None)
Quarter: 2010Q4

REPORT INFORMATION
  Report Type: 
  Country: None (occurrence: None)
  Receive Date: 20101112
  Receipt Date: 20091210
  Transmission Date: 20110411
  Serious: No
  Sender: FDA-Public Use
  Company Number: A0834570A

PATIENT
  Age: 70 Year
  Sex: Male

DRUGS (5)
  1. CARVEDILOL [Suspect]
     Indication: HYPERTENSION
     Dosage: 6.5MG TWICE PER DAY
     Route: 048
     Dates: start: 19970101, end: 19970101
  2. COREG CR [Suspect]
     Indication: HYPERTENSION
     Dosage: 40MG PER DAY
     Route: 048
     Dates: start: 20060101
  3. CELLCEPT [Concomitant]
  4. NEORAL [Concomitant]
  5. AVAPRO [Concomitant]

REACTIONS (1)
  - DRUG INEFFECTIVE [None]
